FAERS Safety Report 18917627 (Version 1)
Quarter: 2021Q1

REPORT INFORMATION
  Report Type: Spontaneous
  Country: NO (occurrence: NO)
  Receive Date: 20210219
  Receipt Date: 20210219
  Transmission Date: 20210420
  Serious: Yes (Disabling, Other)
  Sender: FDA-Public Use
  Company Number: NO-GLAXOSMITHKLINE-NO2021038956

PATIENT
  Age: 25 Year
  Sex: Female
  Weight: 60 kg

DRUGS (1)
  1. LAMICTAL [Suspect]
     Active Substance: LAMOTRIGINE
     Indication: BIPOLAR DISORDER
     Dosage: 450 MG, QD (450 MG DAILY (TWICE A DAY: 250 MG + 200MG))
     Route: 048
     Dates: start: 202001, end: 202009

REACTIONS (5)
  - Dyspepsia [Not Recovered/Not Resolved]
  - Suicidal ideation [Recovering/Resolving]
  - Constipation [Not Recovered/Not Resolved]
  - Anxiety [Recovered/Resolved with Sequelae]
  - Depression [Recovering/Resolving]

NARRATIVE: CASE EVENT DATE: 2020
